FAERS Safety Report 8473602-3 (Version None)
Quarter: 2012Q2

REPORT INFORMATION
  Report Type: 
  Country: None (occurrence: None)
  Receive Date: 20120628
  Receipt Date: 20120111
  Transmission Date: 20120825
  Serious: Yes (Other)
  Sender: FDA-Public Use
  Company Number: US-MYLANLABS-2011S1013903

PATIENT
  Age: 40 Year
  Sex: Female

DRUGS (6)
  1. CARVEDILOL [Concomitant]
  2. RANITIDINE [Concomitant]
  3. LEVOTHYROXINE [Concomitant]
  4. CLOZAPINE [Suspect]
     Dates: end: 20110914
  5. DEPAKOTE [Concomitant]
  6. CITALOPRAM HYDROBROMIDE [Concomitant]

REACTIONS (1)
  - GRANULOCYTOPENIA [None]
